FAERS Safety Report 10044224 (Version 1)
Quarter: 2014Q1

REPORT INFORMATION
  Report Type: Report from Study
  Country: US (occurrence: US)
  Receive Date: 20140328
  Receipt Date: 20140328
  Transmission Date: 20141002
  Serious: Yes (Hospitalization)
  Sender: FDA-Public Use
  Company Number: US-ABBVIE-14P-163-1214290-00

PATIENT
  Sex: Male
  Weight: 89.89 kg

DRUGS (4)
  1. HUMIRA [Suspect]
     Indication: CROHN^S DISEASE
     Dates: start: 2013, end: 2013
  2. HUMIRA [Suspect]
     Dates: start: 2013, end: 20130902
  3. HUMIRA [Suspect]
     Dates: start: 20140304
  4. CELEXA [Concomitant]
     Indication: DEPRESSION

REACTIONS (2)
  - Incisional hernia [Recovered/Resolved]
  - Crohn^s disease [Recovered/Resolved]
